FAERS Safety Report 10314614 (Version 1)
Quarter: 2014Q3

REPORT INFORMATION
  Report Type: Spontaneous
  Country: US (occurrence: None)
  Receive Date: 20140717
  Receipt Date: 20140717
  Transmission Date: 20150326
  Serious: Yes (Hospitalization)
  Sender: FDA-Public Use
  Company Number: UNT-2014-001398

PATIENT
  Age: 43 Year
  Sex: Female
  Weight: 68 kg

DRUGS (2)
  1. ADCIRCA [Concomitant]
     Active Substance: TADALAFIL
  2. REMODULIN [Suspect]
     Active Substance: TREPROSTINIL
     Indication: COR PULMONALE CHRONIC
     Route: 058
     Dates: start: 20101006

REACTIONS (2)
  - Dyspnoea [None]
  - Pneumonia [None]

NARRATIVE: CASE EVENT DATE: 20140520
